FAERS Safety Report 16510639 (Version 1)
Quarter: 2019Q3

REPORT INFORMATION
  Report Type: Spontaneous
  Country: US (occurrence: US)
  Receive Date: 20190701
  Receipt Date: 20190701
  Transmission Date: 20191004
  Serious: No
  Sender: FDA-Public Use
  Company Number: US-TEVA-2019-US-1063015

PATIENT
  Sex: Male

DRUGS (1)
  1. ACTAVIS OXYCODONE HYDROCHLORIDE [Suspect]
     Active Substance: OXYCODONE HYDROCHLORIDE
     Indication: DIABETIC NEUROPATHY
     Dates: start: 20190530

REACTIONS (2)
  - Therapeutic product effect variable [Unknown]
  - Product substitution issue [Unknown]
